FAERS Safety Report 10152379 (Version 4)
Quarter: 2014Q3

REPORT INFORMATION
  Report Type: Spontaneous
  Country: AU (occurrence: AU)
  Receive Date: 20140505
  Receipt Date: 20140926
  Transmission Date: 20150326
  Serious: Yes (Hospitalization)
  Sender: FDA-Public Use
  Company Number: AU-SA-2013SA125128

PATIENT
  Age: 71 Year
  Sex: Female

DRUGS (10)
  1. OSTELIN [Concomitant]
     Active Substance: ERGOCALCIFEROL
     Dosage: DOSE:1000 UNIT(S)
     Dates: start: 20120315
  2. VENLAFAXINE HYDROCHLORIDE. [Concomitant]
     Active Substance: VENLAFAXINE HYDROCHLORIDE
     Dates: start: 2009
  3. PANTOPRAZOLE [Concomitant]
     Active Substance: PANTOPRAZOLE SODIUM
     Dates: start: 20121015
  4. SALBUTAMOL [Concomitant]
     Active Substance: ALBUTEROL
     Dosage: 8 PUFF
     Dates: start: 20130830
  5. MAGNESIUM [Concomitant]
     Active Substance: MAGNESIUM
  6. TRASTUZUMAB EMTANSINE [Suspect]
     Active Substance: ADO-TRASTUZUMAB EMTANSINE
     Indication: BREAST CANCER METASTATIC
     Route: 042
     Dates: start: 20130521, end: 20131112
  7. CLEXANE [Suspect]
     Active Substance: ENOXAPARIN SODIUM
     Indication: PULMONARY EMBOLISM
     Route: 065
     Dates: start: 20110316
  8. PARACETAMOL [Concomitant]
     Active Substance: ACETAMINOPHEN
     Dates: start: 20120415
  9. ZOMETA [Concomitant]
     Active Substance: ZOLEDRONIC ACID
     Dates: start: 20091028
  10. MELOXICAM. [Concomitant]
     Active Substance: MELOXICAM
     Dates: start: 20130830

REACTIONS (3)
  - Ischaemic stroke [Recovered/Resolved with Sequelae]
  - Memory impairment [Recovering/Resolving]
  - Aphasia [Recovering/Resolving]

NARRATIVE: CASE EVENT DATE: 20131112
